FAERS Safety Report 7276557-2 (Version None)
Quarter: 2011Q1

REPORT INFORMATION
  Report Type: 
  Country: None (occurrence: None)
  Receive Date: 20110204
  Receipt Date: 20110202
  Transmission Date: 20110831
  Serious: Yes (Hospitalization)
  Sender: FDA-Public Use
  Company Number: JP-ABBOTT-10P-087-0688968-00

PATIENT
  Sex: Male
  Weight: 63 kg

DRUGS (4)
  1. ISONIAZID [Concomitant]
     Indication: ANTIBIOTIC PROPHYLAXIS
     Route: 048
     Dates: start: 20100901
  2. HUMIRA [Suspect]
     Route: 058
     Dates: start: 20101208, end: 20101208
  3. HUMIRA [Suspect]
     Indication: PSORIATIC ARTHROPATHY
     Route: 058
     Dates: start: 20101117, end: 20101117
  4. HUMIRA [Suspect]
     Route: 058
     Dates: start: 20101126, end: 20101126

REACTIONS (2)
  - PNEUMONIA [None]
  - PLEURISY [None]
